FAERS Safety Report 10098646 (Version 1)
Quarter: 2014Q2

REPORT INFORMATION
  Report Type: Spontaneous
  Country: GB (occurrence: None)
  Receive Date: 20140421
  Receipt Date: 20140421
  Transmission Date: 20141212
  Serious: Yes (Life-Threatening)
  Sender: FDA-Public Use
  Company Number: 2014099368

PATIENT
  Age: 76 Year
  Sex: 0

DRUGS (8)
  1. DALTEPARIN SODIUM [Suspect]
     Indication: ACUTE CORONARY SYNDROME
     Dosage: 18000 UNITS ONCE DAILY FOR 2 DOSES, INTRATHECAL
     Dates: start: 20140325, end: 20140327
  2. ASPIRIN [Suspect]
     Indication: ACUTE CORONARY SYNDROME
     Dates: start: 20140325
  3. WARFARIN [Suspect]
     Indication: ATRIAL FIBRILLATION
     Dosage: 1 MG, UNK, 1 MG TABLETS DOSED AS PER INR ON WARFARIN PRIOR TO ADMISSION.  START DATE NOT KNOWN, ORAL
     Dates: end: 20140324
  4. AMOXICILLIN (AMOXICILLIN) [Concomitant]
  5. ATORVASTATIN (ATORVASTATIN) [Concomitant]
  6. DIGOXIN (DIGOXIN) [Concomitant]
  7. OXYBUTYNIN (OXYBUTYNIN) [Concomitant]
  8. LEVOTHYROXINE (LEVOTHYROXINE) [Concomitant]

REACTIONS (3)
  - Extradural haematoma [None]
  - Subarachnoid haemorrhage [None]
  - International normalised ratio decreased [None]
